FAERS Safety Report 4334777-0 (Version None)
Quarter: 2004Q2

REPORT INFORMATION
  Report Type: 
  Country: None (occurrence: None)
  Receive Date: 20040408
  Receipt Date: 20040318
  Transmission Date: 20050107
  Serious: Yes (Hospitalization, Other)
  Sender: FDA-Public Use
  Company Number: PHBS2004ES03798

PATIENT
  Age: 36 Year
  Sex: Female
  Weight: 94 kg

DRUGS (8)
  1. CYCLOSPORINE [Suspect]
     Indication: LIVER TRANSPLANT
     Dosage: 50 MG, Q12H
     Route: 048
  2. SODIUM CITRATE [Concomitant]
     Dosage: 30 ML, ONCE/SINGLE
     Route: 048
  3. RANITIDINE [Concomitant]
     Dosage: 50 MG, ONCE/SINGLE
     Route: 042
  4. METOCLOPRAMIDE [Concomitant]
     Route: 042
  5. BUPIVACAINE [Concomitant]
     Dosage: TEST DOSE OF 0.25%
  6. BUPIVACAINE [Concomitant]
     Dosage: 19 ML/D
  7. ADRENALINE [Concomitant]
     Dosage: 3.5 ML/D
  8. FENTANYL [Concomitant]
     Dosage: UNK, UNK

REACTIONS (16)
  - ALANINE AMINOTRANSFERASE INCREASED [None]
  - ASPARTATE AMINOTRANSFERASE INCREASED [None]
  - BILE DUCT STENOSIS [None]
  - CAESAREAN SECTION [None]
  - CATARACT [None]
  - CYTOMEGALOVIRUS TEST POSITIVE [None]
  - DRUG EXPOSURE DURING PREGNANCY [None]
  - DRUG INEFFECTIVE [None]
  - HEADACHE [None]
  - HEPATIC ENZYME INCREASED [None]
  - NORMAL NEWBORN [None]
  - OEDEMA PERIPHERAL [None]
  - PREGNANCY [None]
  - RENAL FAILURE ACUTE [None]
  - SURGERY [None]
  - WEIGHT INCREASED [None]
